FAERS Safety Report 5204228-2 (Version None)
Quarter: 2007Q1

REPORT INFORMATION
  Report Type: 
  Country: None (occurrence: None)
  Receive Date: 20070110
  Receipt Date: 20060117
  Transmission Date: 20070707
  Serious: No
  Sender: FDA-Public Use
  Company Number: US-BRISTOL-MYERS SQUIBB COMPANY-13249719

PATIENT

DRUGS (2)
  1. ABILIFY [Suspect]
     Route: 048
  2. WELLBUTRIN [Concomitant]

REACTIONS (2)
  - SOMNOLENCE [None]
  - VISUAL DISTURBANCE [None]
